FAERS Safety Report 21155728 (Version 1)
Quarter: 2022Q3

REPORT INFORMATION
  Report Type: Spontaneous
  Country: US (occurrence: US)
  Receive Date: 20220801
  Receipt Date: 20220801
  Transmission Date: 20221027
  Serious: Yes (Hospitalization, Other)
  Sender: FDA-Public Use
  Company Number: US-NOVARTISPH-NVSC2022US171014

PATIENT
  Sex: Female

DRUGS (1)
  1. PROMACTA [Suspect]
     Active Substance: ELTROMBOPAG OLAMINE
     Indication: Immunology test
     Dosage: 50 MG, QD
     Route: 048
     Dates: start: 20220620

REACTIONS (2)
  - Platelet count decreased [Unknown]
  - Product use in unapproved indication [Unknown]
